FAERS Safety Report 5006034-0 (Version None)
Quarter: 2006Q1

REPORT INFORMATION
  Report Type: 
  Country: None (occurrence: None)
  Receive Date: 20060320
  Receipt Date: 20050318
  Transmission Date: 20060701
  Serious: Yes (Life-Threatening, Other)
  Sender: FDA-Public Use
  Company Number: 2005-01-1069

PATIENT
  Age: 48 Year
  Sex: Male
  Weight: 71.2147 kg

DRUGS (3)
  1. PEG-INTRON [Suspect]
     Indication: HEPATITIS C
     Dosage: 120 MCG QWK SUBCUTANEOUS
     Route: 058
  2. RIBAVIRIN [Suspect]
     Indication: HEPATITIS C
     Dosage: 1200 MG QD ORAL
     Route: 048
  3. ALPRAZOLAM [Suspect]
     Indication: ANXIETY
     Dosage: 1 MG QD PRN ORAL
     Route: 048

REACTIONS (4)
  - HAEMOGLOBIN [None]
  - RASH [None]
  - SUICIDE ATTEMPT [None]
  - WHITE BLOOD CELL COUNT DECREASED [None]
